FAERS Safety Report 21796944 (Version 2)
Quarter: 2022Q4

REPORT INFORMATION
  Report Type: Other
  Country: US (occurrence: None)
  Receive Date: 20221230
  Receipt Date: 20221230
  Transmission Date: 20230113
  Serious: No
  Sender: FDA-Public Use
  Company Number: US-ROCHE-3254054

PATIENT
  Age: 57 Year
  Sex: Female
  Weight: 86.260 kg

DRUGS (2)
  1. OCREVUS [Suspect]
     Active Substance: OCRELIZUMAB
     Indication: Relapsing multiple sclerosis
     Dosage: SUBSEQUENT DOSE ON 29/DEC/2022 FOR THE SECOND HALF OF THE FIRST INFUSION
     Route: 042
     Dates: start: 20221214
  2. TYSABRI [Concomitant]
     Active Substance: NATALIZUMAB

REACTIONS (2)
  - Rhinorrhoea [Not Recovered/Not Resolved]
  - Oral herpes [Not Recovered/Not Resolved]

NARRATIVE: CASE EVENT DATE: 20221217
